FAERS Safety Report 5612282-9 (Version None)
Quarter: 2008Q1

REPORT INFORMATION
  Report Type: 
  Country: None (occurrence: None)
  Receive Date: 20080204
  Receipt Date: 20080204
  Transmission Date: 20080703
  Serious: Yes (Other)
  Sender: FDA-Public Use
  Company Number: A0707122A

PATIENT
  Age: 43 Year
  Sex: Female

DRUGS (2)
  1. ALLI [Suspect]
     Route: 048
  2. PREDNISONE TAB [Suspect]
     Indication: EYE DISORDER
     Route: 050

REACTIONS (5)
  - BLINDNESS [None]
  - CONJUNCTIVITIS INFECTIVE [None]
  - EYE IRRITATION [None]
  - OCULAR HYPERAEMIA [None]
  - VISION BLURRED [None]
